FAERS Safety Report 24674368 (Version 2)
Quarter: 2024Q4

REPORT INFORMATION
  Report Type: Other
  Country: BR (occurrence: BR)
  Receive Date: 20241128
  Receipt Date: 20241219
  Transmission Date: 20250115
  Serious: No
  Sender: TOLMAR
  Company Number: BR-TOLMAR, INC.-24BR053606

PATIENT
  Sex: Female

DRUGS (2)
  1. ELIGARD [Suspect]
     Active Substance: LEUPROLIDE ACETATE
     Indication: Precocious puberty
     Dosage: 45 MILLIGRAM, Q 6 MONTH
     Route: 058
  2. ELIGARD [Suspect]
     Active Substance: LEUPROLIDE ACETATE
     Indication: Precocious puberty
     Dosage: UNK

REACTIONS (2)
  - Intercepted product preparation error [Recovered/Resolved]
  - Product physical consistency issue [Recovered/Resolved]

NARRATIVE: CASE EVENT DATE: 20240101
